FAERS Safety Report 19503128 (Version 7)
Quarter: 2022Q3

REPORT INFORMATION
  Report Type: Spontaneous
  Country: US (occurrence: US)
  Receive Date: 20210707
  Receipt Date: 20220719
  Transmission Date: 20221027
  Serious: Yes (Other)
  Sender: FDA-Public Use
  Company Number: US-GLAXOSMITHKLINE-US2021AMR000115

PATIENT

DRUGS (2)
  1. NIRAPARIB [Suspect]
     Active Substance: NIRAPARIB
     Indication: Ovarian cancer
     Dosage: 300 MG, QD
     Route: 048
     Dates: start: 20210501
  2. NIRAPARIB [Suspect]
     Active Substance: NIRAPARIB
     Dosage: 200 MG, QD
     Route: 048
     Dates: start: 2021, end: 20220502

REACTIONS (8)
  - Recurrent cancer [Unknown]
  - Musculoskeletal stiffness [Not Recovered/Not Resolved]
  - Red blood cell count decreased [Unknown]
  - Full blood count decreased [Recovered/Resolved]
  - Blood glucose increased [Not Recovered/Not Resolved]
  - Myalgia [Unknown]
  - Hypertension [Unknown]
  - Carbohydrate antigen 125 increased [Unknown]
